FAERS Safety Report 5083057-7 (Version None)
Quarter: 2006Q3

REPORT INFORMATION
  Report Type: 
  Country: None (occurrence: None)
  Receive Date: 20060814
  Receipt Date: 20060804
  Transmission Date: 20061208
  Serious: Yes (Hospitalization, Other)
  Sender: FDA-Public Use
  Company Number: 2006-07-0234

PATIENT
  Age: 56 Year
  Sex: Male
  Weight: 73 kg

DRUGS (3)
  1. PEG-INTRON [Suspect]
     Indication: HEPATITIS C
     Dosage: 100 MCG QW SUBCUTANEOUS
     Route: 058
     Dates: start: 20060224, end: 20060630
  2. REBETOL [Suspect]
     Indication: HEPATITIS C
     Dosage: 800-600*MG ORAL
     Route: 048
     Dates: start: 20060224, end: 20060602
  3. REBETOL [Suspect]
     Indication: HEPATITIS C
     Dosage: 800-600*MG ORAL
     Route: 048
     Dates: start: 20060603, end: 20060630

REACTIONS (5)
  - AGRANULOCYTOSIS [None]
  - APLASTIC ANAEMIA [None]
  - PHARYNGOLARYNGEAL PAIN [None]
  - PLATELET COUNT DECREASED [None]
  - PYREXIA [None]
